FAERS Safety Report 4358159-0 (Version None)
Quarter: 2004Q2

REPORT INFORMATION
  Report Type: 
  Country: None (occurrence: None)
  Receive Date: 20040511
  Receipt Date: 20040430
  Transmission Date: 20050107
  Serious: Yes (Hospitalization)
  Sender: FDA-Public Use
  Company Number: FR-JNJFOC-20030701059

PATIENT
  Age: 35 Year
  Sex: Male
  Weight: 72 kg

DRUGS (8)
  1. REMICADE [Suspect]
     Indication: ANKYLOSING SPONDYLITIS
     Dosage: 300 MG, 1 IN 1 DAY, INTRAVENOUS
     Route: 042
     Dates: start: 20030606, end: 20030606
  2. PREDNISONE TAB [Suspect]
     Indication: ANKYLOSING SPONDYLITIS
     Dosage: SEE IMAGE
     Route: 048
     Dates: start: 20030220
  3. PREDNISONE TAB [Suspect]
     Indication: ANKYLOSING SPONDYLITIS
     Dosage: SEE IMAGE
     Route: 048
     Dates: start: 20030601
  4. CELEBREX (SPONDYLITIS) [Concomitant]
  5. TRAMADOL HCL [Concomitant]
  6. OMEPRAZOLE [Concomitant]
  7. PAROXETINE HCL [Concomitant]
  8. FENOFIBRATE [Concomitant]

REACTIONS (1)
  - HYPERTRIGLYCERIDAEMIA [None]
